FAERS Safety Report 20868286 (Version 2)
Quarter: 2022Q2

REPORT INFORMATION
  Report Type: Report from Study
  Country: DO (occurrence: DO)
  Receive Date: 20220524
  Receipt Date: 20220617
  Transmission Date: 20220720
  Serious: Yes (Death, Other)
  Sender: FDA-Public Use
  Company Number: DO-NOVARTISPH-NVSC2021DO231496

PATIENT
  Sex: Female

DRUGS (2)
  1. KISQALI [Suspect]
     Active Substance: RIBOCICLIB
     Indication: Breast cancer
     Dosage: 600 MG, QD (4 AND 28 28 THREE TABLETS DAILY)
     Route: 048
     Dates: start: 201904
  2. KISQALI [Suspect]
     Active Substance: RIBOCICLIB
     Dosage: 600 MG, QD
     Route: 048
     Dates: start: 20191122, end: 20220501

REACTIONS (9)
  - Lung neoplasm malignant [Fatal]
  - Second primary malignancy [Fatal]
  - Metastases to liver [Unknown]
  - Metastases to spine [Unknown]
  - Metastases to central nervous system [Unknown]
  - Back pain [Unknown]
  - Bone pain [Unknown]
  - Arthralgia [Unknown]
  - Musculoskeletal pain [Unknown]
